FAERS Safety Report 6301195-5 (Version None)
Quarter: 2009Q3

REPORT INFORMATION
  Report Type: 
  Country: None (occurrence: None)
  Receive Date: 20090807
  Receipt Date: 20090731
  Transmission Date: 20100115
  Serious: Yes (Hospitalization)
  Sender: FDA-Public Use
  Company Number: PHHO2009CN07831

PATIENT
  Sex: Male
  Weight: 90 kg

DRUGS (7)
  1. ALISKIREN ALI+TAB+CVR [Suspect]
     Indication: CARDIOVASCULAR DISORDER
     Dosage: CODE NOT BROKEN
     Route: 048
     Dates: start: 20090512, end: 20090615
  2. ASPIRIN [Concomitant]
     Indication: HYPERTENSION
     Dosage: UNK
  3. METFORMIN [Concomitant]
  4. INSULIN [Concomitant]
  5. FOSINOPRIL SODIUM [Concomitant]
  6. METOPROLOL TARTRATE [Concomitant]
  7. INDAPAMIDE [Concomitant]

REACTIONS (8)
  - ABDOMINAL PAIN UPPER [None]
  - ASPHYXIA [None]
  - COMA [None]
  - DIZZINESS [None]
  - FATIGUE [None]
  - HAEMATEMESIS [None]
  - OESOPHAGEAL VARICES HAEMORRHAGE [None]
  - UPPER GASTROINTESTINAL HAEMORRHAGE [None]
